FAERS Safety Report 17285853 (Version 1)
Quarter: 2020Q1

REPORT INFORMATION
  Report Type: Spontaneous
  Country: CA (occurrence: CA)
  Receive Date: 20200118
  Receipt Date: 20200118
  Transmission Date: 20200409
  Serious: Yes (Other)
  Sender: FDA-Public Use
  Company Number: CA-APOTEX-2020AP006678

PATIENT
  Age: 67 Year
  Sex: Female

DRUGS (1)
  1. APO-DOXY [DOXYCYCLINE HYCLATE] [Suspect]
     Active Substance: DOXYCYCLINE HYCLATE
     Indication: PRODUCT USED FOR UNKNOWN INDICATION
     Dosage: 1 DF, UNK (ONE DOSE OF 100 MG)
     Route: 065

REACTIONS (2)
  - Acute myocardial infarction [Unknown]
  - Anaphylactic shock [Unknown]
